FAERS Safety Report 4329461-3 (Version None)
Quarter: 2004Q1

REPORT INFORMATION
  Report Type: 
  Country: None (occurrence: None)
  Receive Date: 20040331
  Receipt Date: 20040331
  Transmission Date: 20041129
  Serious: Yes (Death, Life-Threatening, Hospitalization)
  Sender: FDA-Public Use
  Company Number: None

PATIENT
  Age: 84 Year
  Sex: Female
  Weight: 47.6277 kg

DRUGS (1)
  1. PACERONE [Suspect]
     Dosage: 200 MG PO Q DAY
     Route: 048
     Dates: start: 20011001

REACTIONS (14)
  - ATRIAL FIBRILLATION [None]
  - BRADYCARDIA [None]
  - CATHETER RELATED COMPLICATION [None]
  - DRUG TOXICITY [None]
  - HYPERLIPIDAEMIA [None]
  - HYPERTROPHIC CARDIOMYOPATHY [None]
  - HYPOXIA [None]
  - LUNG INFILTRATION [None]
  - METABOLIC ACIDOSIS [None]
  - NAUSEA [None]
  - PNEUMOTHORAX [None]
  - PULMONARY FIBROSIS [None]
  - TACHYCARDIA [None]
  - VOMITING [None]
